FAERS Safety Report 18506350 (Version 2)
Quarter: 2021Q4

REPORT INFORMATION
  Report Type: Spontaneous
  Country: US (occurrence: US)
  Receive Date: 20201116
  Receipt Date: 20211201
  Transmission Date: 20220303
  Serious: No
  Sender: FDA-Public Use
  Company Number: US-PFIZER INC-2020440328

PATIENT
  Age: 37 Year
  Sex: Male

DRUGS (2)
  1. XELJANZ XR [Suspect]
     Active Substance: TOFACITINIB CITRATE
     Indication: Colitis ulcerative
     Dosage: 22 MG [FOR ABOUT 2 MONTHS]
     Dates: start: 20200528, end: 2020
  2. XELJANZ XR [Suspect]
     Active Substance: TOFACITINIB CITRATE
     Indication: Psoriasis
     Dosage: 11 MG, DAILY [FOR ABOUT 3 MONTHS]
     Dates: start: 2020

REACTIONS (5)
  - Off label use [Unknown]
  - Off label use [Unknown]
  - Psoriasis [Not Recovered/Not Resolved]
  - Product residue present [Unknown]
  - Migraine [Unknown]

NARRATIVE: CASE EVENT DATE: 20200101
